FAERS Safety Report 7689170-X (Version None)
Quarter: 2011Q3

REPORT INFORMATION
  Report Type: 
  Country: None (occurrence: None)
  Receive Date: 20110817
  Receipt Date: 20110804
  Transmission Date: 20111222
  Serious: Yes (Other)
  Sender: FDA-Public Use
  Company Number: JP-CELGENEUS-087-21880-11040165

PATIENT
  Sex: Male

DRUGS (42)
  1. REVLIMID [Suspect]
     Indication: MULTIPLE MYELOMA
     Dosage: 25 MILLIGRAM
     Route: 048
     Dates: start: 20101129, end: 20101212
  2. ASPIRIN [Concomitant]
     Indication: PROPHYLAXIS
     Dosage: 100 MILLIGRAM
     Route: 048
     Dates: start: 20101129, end: 20110206
  3. MUCOSTA [Concomitant]
     Indication: PROPHYLAXIS
     Dosage: 300 MILLIGRAM
     Route: 048
     Dates: start: 20101129, end: 20110206
  4. LENDORMIN D [Concomitant]
     Dosage: .25 MILLIGRAM
     Route: 048
     Dates: start: 20101220, end: 20110206
  5. KYTRIL [Concomitant]
     Dosage: 3 MILLIGRAM
     Route: 041
     Dates: start: 20110120, end: 20110120
  6. REVLIMID [Suspect]
     Indication: REFRACTORY CANCER
     Dosage: 25 MILLIGRAM
     Route: 048
     Dates: start: 20101220, end: 20110102
  7. VELCADE [Suspect]
     Dosage: 2.129 MILLIGRAM
     Route: 041
     Dates: start: 20110113, end: 20110124
  8. DEXAMETHASONE SODIUM PHOSPHATE [Suspect]
     Indication: REFRACTORY CANCER
     Dosage: 13.2 MILLIGRAM
     Route: 041
     Dates: start: 20101202, end: 20101203
  9. SULFAMETHOXAZOLE [Concomitant]
     Indication: PROPHYLAXIS
     Dosage: 1 TABLET
     Route: 048
     Dates: start: 20101129, end: 20110206
  10. KYTRIL [Concomitant]
     Dosage: 3 MILLIGRAM
     Route: 041
     Dates: start: 20110124, end: 20110124
  11. REVLIMID [Suspect]
     Dosage: 25 MILLIGRAM
     Route: 048
     Dates: start: 20110113, end: 20110126
  12. VELCADE [Suspect]
     Dosage: 1.3 MILLIGRAM/SQ. METER
     Route: 041
     Dates: start: 20101206, end: 20101209
  13. DEXAMETHASONE SODIUM PHOSPHATE [Suspect]
     Dosage: 13.2 MILLIGRAM
     Route: 041
     Dates: start: 20101209, end: 20101209
  14. KYTRIL [Concomitant]
     Indication: PROPHYLAXIS
     Dosage: 3 MILLIGRAM
     Route: 041
     Dates: start: 20101129, end: 20101129
  15. KYTRIL [Concomitant]
     Dosage: 3 MILLIGRAM
     Route: 041
     Dates: start: 20101202, end: 20101202
  16. KYTRIL [Concomitant]
     Dosage: 3 MILLIGRAM
     Route: 041
     Dates: start: 20101220, end: 20101229
  17. VELCADE [Suspect]
     Dosage: 2.129 MILLIGRAM
     Route: 041
     Dates: start: 20101220, end: 20101229
  18. DECADRON [Concomitant]
     Dosage: 16.5 MILLIGRAM
     Route: 041
     Dates: start: 20101220, end: 20101223
  19. ZOVIRAX [Concomitant]
     Indication: PROPHYLAXIS
     Dosage: 200 MILLIGRAM
     Route: 048
     Dates: start: 20101129, end: 20110206
  20. ISODINE [Concomitant]
     Indication: PROPHYLAXIS
     Dosage: ADEQUATE DOSE
     Route: 048
     Dates: start: 20101129, end: 20110206
  21. VELCADE [Suspect]
     Indication: MULTIPLE MYELOMA
     Dosage: 1.3 MILLIGRAM/SQ. METER
     Route: 041
     Dates: start: 20101129, end: 20101129
  22. DECADRON [Concomitant]
     Indication: REFRACTORY CANCER
     Dosage: 3.3 MILLIGRAM
     Route: 041
     Dates: start: 20101202, end: 20101203
  23. DECADRON [Concomitant]
     Dosage: 3.3 MILLIGRAM
     Route: 041
     Dates: start: 20101206, end: 20101207
  24. DECADRON [Concomitant]
     Dosage: 16.5 MILLIGRAM
     Route: 041
     Dates: start: 20101227, end: 20101230
  25. LANSOPRAZOLE [Concomitant]
     Indication: PROPHYLAXIS
     Dosage: 30 MILLIGRAM
     Route: 048
     Dates: start: 20101129, end: 20110206
  26. ITRACONAZOLE [Concomitant]
     Indication: PROPHYLAXIS
     Dosage: 20 MILLILITER
     Route: 048
     Dates: start: 20110202, end: 20110206
  27. KYTRIL [Concomitant]
     Dosage: 3 MILLIGRAM
     Route: 041
     Dates: start: 20101209, end: 20101209
  28. DEXAMETHASONE SODIUM PHOSPHATE [Suspect]
     Indication: MULTIPLE MYELOMA
     Dosage: 13.2 MILLIGRAM
     Route: 041
     Dates: start: 20101129, end: 20101130
  29. DECADRON [Concomitant]
     Indication: MULTIPLE MYELOMA
     Dosage: 3.3 MILLIGRAM
     Route: 041
     Dates: start: 20101129, end: 20101130
  30. DECADRON [Concomitant]
     Dosage: 16.5 MILLIGRAM
     Route: 041
     Dates: start: 20110113, end: 20110114
  31. DECADRON [Concomitant]
     Dosage: 16.5 MILLIGRAM
     Route: 041
     Dates: start: 20110124, end: 20110125
  32. FUNGIZONE [Concomitant]
     Indication: PROPHYLAXIS
     Dosage: 16 MILLILITER
     Route: 048
     Dates: start: 20101129, end: 20101226
  33. KYTRIL [Concomitant]
     Dosage: 3 MILLIGRAM
     Route: 041
     Dates: start: 20110113, end: 20110114
  34. DEXAMETHASONE SODIUM PHOSPHATE [Suspect]
     Dosage: 13.2 MILLIGRAM
     Route: 041
     Dates: start: 20101206, end: 20101207
  35. DECADRON [Concomitant]
     Dosage: 16.5 MILLIGRAM
     Route: 041
     Dates: start: 20110117, end: 20110118
  36. DECADRON [Concomitant]
     Dosage: 16.5 MILLIGRAM
     Route: 041
     Dates: start: 20110120, end: 20110121
  37. ZOMETA [Concomitant]
     Indication: PROPHYLAXIS
     Dosage: 4 MILLIGRAM
     Route: 041
     Dates: start: 20110120, end: 20110120
  38. VELCADE [Suspect]
     Indication: REFRACTORY CANCER
     Dosage: 1.3 MILLIGRAM/SQ. METER
     Route: 041
     Dates: start: 20101202, end: 20101202
  39. DECADRON [Concomitant]
     Dosage: 3.3 MILLIGRAM
     Route: 041
     Dates: start: 20101209, end: 20101209
  40. ZOMETA [Concomitant]
     Indication: MULTIPLE MYELOMA
     Dosage: 4 MILLIGRAM
     Route: 041
     Dates: start: 20101203, end: 20101203
  41. KYTRIL [Concomitant]
     Dosage: 3 MILLIGRAM
     Route: 041
     Dates: start: 20101206, end: 20101206
  42. KYTRIL [Concomitant]
     Dosage: 3 MILLIGRAM
     Route: 041
     Dates: start: 20110117, end: 20110118

REACTIONS (2)
  - HAEMOGLOBIN DECREASED [None]
  - HYPOGAMMAGLOBULINAEMIA [None]
